FAERS Safety Report 8284679-2 (Version None)
Quarter: 2012Q2

REPORT INFORMATION
  Report Type: 
  Country: None (occurrence: None)
  Receive Date: 20120413
  Receipt Date: 20110708
  Transmission Date: 20120825
  Serious: No
  Sender: FDA-Public Use
  Company Number: US-ASTRAZENECA-2011SE15659

PATIENT
  Age: 775 Month
  Sex: Female

DRUGS (1)
  1. NEXIUM [Suspect]
     Route: 048

REACTIONS (10)
  - OESOPHAGEAL PAIN [None]
  - VOMITING [None]
  - ADVERSE EVENT [None]
  - ERUCTATION [None]
  - ABDOMINAL PAIN UPPER [None]
  - PHARYNGEAL MASS [None]
  - DRUG DOSE OMISSION [None]
  - THROAT IRRITATION [None]
  - GASTROOESOPHAGEAL REFLUX DISEASE [None]
  - NAUSEA [None]
